FAERS Safety Report 7010394 (Version 2)
Quarter: 2014Q1

REPORT INFORMATION
  Report Type: Spontaneous
  Country: US (occurrence: None)
  Receive Date: 20090526
  Receipt Date: 20140220
  Transmission Date: 20141002
  Serious: Yes (Other)
  Sender: FDA-Public Use
  Company Number: 2009S1004032

PATIENT
  Sex: Female

DRUGS (1)
  1. PHOSPHO-SODA [Suspect]
     Dosage: PO
     Route: 048
     Dates: start: 200809

REACTIONS (1)
  - Renal failure [None]
